FAERS Safety Report 7674348-1 (Version None)
Quarter: 2011Q3

REPORT INFORMATION
  Report Type: 
  Country: None (occurrence: None)
  Receive Date: 20110808
  Receipt Date: 20110725
  Transmission Date: 20111222
  Serious: Yes (Other)
  Sender: FDA-Public Use
  Company Number: 11-055-01

PATIENT
  Age: 11 Year
  Sex: Male

DRUGS (1)
  1. LEVETIRACETAM [Suspect]
     Indication: CONVULSION
     Dosage: 25 MG/KG; QD 40MG/KG BID

REACTIONS (6)
  - DRUG INEFFECTIVE [None]
  - FALL [None]
  - MYOCLONUS [None]
  - BALANCE DISORDER [None]
  - TREMOR [None]
  - ELECTROENCEPHALOGRAM ABNORMAL [None]
